FAERS Safety Report 22320735 (Version 1)
Quarter: 2023Q2

REPORT INFORMATION
  Report Type: Spontaneous
  Country: US (occurrence: US)
  Receive Date: 20230515
  Receipt Date: 20230515
  Transmission Date: 20230722
  Serious: No
  Sender: FDA-Public Use
  Company Number: US-MYLANLABS-2023M1047151

PATIENT
  Age: 74 Year
  Sex: Female

DRUGS (1)
  1. SEMGLEE (INSULIN GLARGINE-YFGN) [Suspect]
     Active Substance: INSULIN GLARGINE-YFGN
     Indication: Diabetes mellitus
     Dosage: 10 INTERNATIONAL UNIT, QD (EVERY NIGHT )
     Route: 058

REACTIONS (4)
  - Device use issue [Unknown]
  - Device leakage [Unknown]
  - Needle issue [Unknown]
  - Product quality issue [Unknown]

NARRATIVE: CASE EVENT DATE: 20230430
